FAERS Safety Report 16027623 (Version 3)
Quarter: 2019Q1

REPORT INFORMATION
  Report Type: Report from Study
  Country: ES (occurrence: ES)
  Receive Date: 20190304
  Receipt Date: 20190321
  Transmission Date: 20190418
  Serious: No
  Sender: FDA-Public Use
  Company Number: ES-ACTELION-A-NJ2019-186966

PATIENT
  Sex: Female

DRUGS (1)
  1. VENTAVIS [Suspect]
     Active Substance: ILOPROST
     Indication: PULMONARY HYPERTENSION
     Dosage: 5 MCG 5ID
     Route: 055
     Dates: start: 20140616

REACTIONS (2)
  - Product dose omission [Unknown]
  - Underdose [Unknown]

NARRATIVE: CASE EVENT DATE: 20190201
